FAERS Safety Report 4558373-5 (Version None)
Quarter: 2005Q1

REPORT INFORMATION
  Report Type: 
  Country: None (occurrence: None)
  Receive Date: 20050121
  Receipt Date: 20040302
  Transmission Date: 20050727
  Serious: Yes (Death, Hospitalization, Other)
  Sender: FDA-Public Use
  Company Number: JP-MERCK-0403USA00421

PATIENT
  Age: 78 Year
  Sex: Male

DRUGS (11)
  1. PEPCID RPD [Suspect]
     Indication: GASTRIC ULCER
     Route: 048
     Dates: start: 20030712, end: 20040226
  2. PEPCID RPD [Suspect]
     Route: 048
     Dates: start: 20030527, end: 20030711
  3. DEPAS [Suspect]
     Indication: COORDINATION ABNORMAL
     Route: 048
     Dates: start: 20030715, end: 20040226
  4. DIMETHICONE [Concomitant]
     Indication: ENTERITIS
     Route: 048
     Dates: start: 20030410
  5. ECABET SODIUM [Concomitant]
     Indication: GASTRIC ULCER
     Route: 048
     Dates: start: 20030712
  6. KETOTIFEN FUMARATE [Concomitant]
     Indication: DERMATITIS
     Route: 048
     Dates: start: 20010322
  7. SENNOSIDES [Concomitant]
     Indication: CONSTIPATION
     Route: 048
     Dates: start: 20010322
  8. DROXIDOPA [Concomitant]
     Indication: PARKINSON'S DISEASE
     Route: 048
     Dates: start: 20031030
  9. BIOFERMIN [Concomitant]
     Indication: ENTERITIS
     Route: 048
     Dates: start: 20030712
  10. MEXILETINE HYDROCHLORIDE [Concomitant]
     Indication: VENTRICULAR EXTRASYSTOLES
     Route: 048
     Dates: start: 20040203
  11. CALTAN [Concomitant]
     Indication: VITAMIN B12 DEFICIENCY
     Route: 048
     Dates: start: 20010322

REACTIONS (5)
  - ANGINA PECTORIS [None]
  - CARDIAC ARREST [None]
  - RESPIRATORY ARREST [None]
  - RHABDOMYOLYSIS [None]
  - VENTRICULAR EXTRASYSTOLES [None]
